FAERS Safety Report 5051360-2 (Version None)
Quarter: 2006Q3

REPORT INFORMATION
  Report Type: 
  Country: None (occurrence: None)
  Receive Date: 20060714
  Receipt Date: 20060711
  Transmission Date: 20061208
  Serious: Yes (Hospitalization)
  Sender: FDA-Public Use
  Company Number: 2006UW14237

PATIENT
  Age: 35 Year
  Sex: Female

DRUGS (2)
  1. SEROQUEL [Suspect]
     Route: 048
  2. CLONAZEPAM [Suspect]

REACTIONS (4)
  - HYPOTENSION [None]
  - OVERDOSE [None]
  - RESPIRATORY DISTRESS [None]
  - TACHYCARDIA [None]
